FAERS Safety Report 6021456-7 (Version None)
Quarter: 2008Q4

REPORT INFORMATION
  Report Type: 
  Country: None (occurrence: None)
  Receive Date: 20081229
  Receipt Date: 20081222
  Transmission Date: 20090506
  Serious: Yes (Hospitalization)
  Sender: FDA-Public Use
  Company Number: FR-AVENTIS-200814057FR

PATIENT
  Age: 59 Year
  Sex: Male

DRUGS (4)
  1. ARAVA [Suspect]
     Indication: RHEUMATOID ARTHRITIS
     Route: 048
     Dates: start: 20000101, end: 20080925
  2. LANTUS [Suspect]
     Indication: DIABETES MELLITUS
     Route: 058
     Dates: start: 20071201, end: 20081001
  3. CORTANCYL [Suspect]
     Indication: RHEUMATOID ARTHRITIS
     Route: 048
     Dates: start: 20000101, end: 20080801
  4. TAHOR [Suspect]
     Route: 048
     Dates: start: 20080101, end: 20080925

REACTIONS (3)
  - LEUKOCYTOCLASTIC VASCULITIS [None]
  - PRURITUS [None]
  - RASH [None]
